FAERS Safety Report 18323358 (Version 1)
Quarter: 2020Q3

REPORT INFORMATION
  Report Type: Other
  Country: HU (occurrence: HU)
  Receive Date: 20200929
  Receipt Date: 20200929
  Transmission Date: 20201103
  Serious: Yes (Life-Threatening, Hospitalization)
  Sender: FDA-Public Use
  Company Number: HU-ROCHE-2685284

PATIENT
  Age: 12 Year
  Sex: Male

DRUGS (21)
  1. DIAZEPAM. [Suspect]
     Active Substance: DIAZEPAM
     Indication: LOSS OF CONSCIOUSNESS
     Route: 065
  2. CLONAZEPAM. [Suspect]
     Active Substance: CLONAZEPAM
     Indication: SEIZURE
  3. CARBAMAZEPINE. [Concomitant]
     Active Substance: CARBAMAZEPINE
     Indication: EMOTIONAL DISORDER
  4. CLONAZEPAM. [Suspect]
     Active Substance: CLONAZEPAM
     Indication: HYPERTONIA
  5. PHENYTOIN. [Suspect]
     Active Substance: PHENYTOIN
     Indication: HYPERKINESIA
  6. PHENYTOIN. [Suspect]
     Active Substance: PHENYTOIN
     Indication: HYPERTONIA
  7. PHENYTOIN. [Suspect]
     Active Substance: PHENYTOIN
     Indication: LOSS OF CONSCIOUSNESS
  8. HALOPERIDOL. [Concomitant]
     Active Substance: HALOPERIDOL
     Indication: AGITATION
     Route: 048
  9. HALOPERIDOL. [Concomitant]
     Active Substance: HALOPERIDOL
     Route: 065
  10. DIAZEPAM. [Suspect]
     Active Substance: DIAZEPAM
     Indication: CONFUSIONAL STATE
  11. DIAZEPAM. [Suspect]
     Active Substance: DIAZEPAM
     Indication: HYPERTONIA
  12. PHENYTOIN. [Suspect]
     Active Substance: PHENYTOIN
     Indication: CONFUSIONAL STATE
  13. HALOPERIDOL. [Suspect]
     Active Substance: HALOPERIDOL
     Indication: MENTAL DISORDER
     Route: 042
  14. CLONAZEPAM. [Suspect]
     Active Substance: CLONAZEPAM
     Indication: CONFUSIONAL STATE
     Route: 065
  15. CLONAZEPAM. [Suspect]
     Active Substance: CLONAZEPAM
     Indication: LOSS OF CONSCIOUSNESS
  16. PHENYTOIN. [Suspect]
     Active Substance: PHENYTOIN
     Indication: SEIZURE
     Route: 065
  17. CARBAMAZEPINE. [Concomitant]
     Active Substance: CARBAMAZEPINE
     Indication: AGITATION
     Route: 048
  18. DIAZEPAM. [Suspect]
     Active Substance: DIAZEPAM
     Indication: SEIZURE
  19. CARBAMAZEPINE. [Suspect]
     Active Substance: CARBAMAZEPINE
     Indication: PRODUCT USED FOR UNKNOWN INDICATION
     Route: 065
  20. DIAZEPAM. [Suspect]
     Active Substance: DIAZEPAM
     Indication: HYPERKINESIA
  21. CLONAZEPAM. [Suspect]
     Active Substance: CLONAZEPAM
     Indication: HYPERKINESIA

REACTIONS (3)
  - Seizure [Unknown]
  - Neuroleptic malignant syndrome [Recovered/Resolved]
  - Medication error [Unknown]
